FAERS Safety Report 9549835 (Version 2)
Quarter: 2013Q3

REPORT INFORMATION
  Report Type: Spontaneous
  Country: HU (occurrence: HU)
  Receive Date: 20130924
  Receipt Date: 20130924
  Transmission Date: 20140515
  Serious: Yes (Other)
  Sender: FDA-Public Use
  Company Number: HU-ACTAVIS-2013-16201

PATIENT
  Age: 44 Year
  Sex: Male

DRUGS (4)
  1. METFORMIN (UNKNOWN) [Suspect]
     Indication: DIABETES MELLITUS
     Dosage: 1000 MG, BID
     Route: 065
  2. METFORMIN (UNKNOWN) [Suspect]
     Dosage: 500 MG, BID
     Route: 065
  3. GLIMEPIRIDE (UNKNOWN) [Suspect]
     Indication: DIABETES MELLITUS
     Dosage: 4 MG, QAM
     Route: 065
  4. GLIMEPIRIDE (UNKNOWN) [Suspect]
     Dosage: 2 MG, QAM
     Route: 065

REACTIONS (3)
  - Hypoglycaemia [Recovered/Resolved]
  - Weight increased [Recovering/Resolving]
  - Blood pressure increased [Unknown]
